FAERS Safety Report 23696875 (Version 1)
Quarter: 2024Q2

REPORT INFORMATION
  Report Type: Report from Study
  Country: CA (occurrence: CA)
  Receive Date: 20240402
  Receipt Date: 20240402
  Transmission Date: 20240716
  Serious: Yes (Hospitalization)
  Sender: FDA-Public Use
  Company Number: CA-BAYER-2024A046823

PATIENT
  Sex: Male

DRUGS (1)
  1. EYLEA [Suspect]
     Active Substance: AFLIBERCEPT
     Indication: Age-related macular degeneration
     Dosage: 40 MG/ML, SOLUTION FOR INJECTION
     Dates: start: 20240219

REACTIONS (4)
  - Fall [Recovering/Resolving]
  - Confusional state [Not Recovered/Not Resolved]
  - Ocular hyperaemia [Unknown]
  - Cystitis [Unknown]

NARRATIVE: CASE EVENT DATE: 20240201
